FAERS Safety Report 5736764-4 (Version None)
Quarter: 2008Q2

REPORT INFORMATION
  Report Type: 
  Country: None (occurrence: None)
  Receive Date: 20080513
  Receipt Date: 20060508
  Transmission Date: 20081010
  Serious: Yes (Death)
  Sender: FDA-Public Use
  Company Number: CZ-ABBOTT-08P-217-0451391-00

PATIENT
  Sex: Male

DRUGS (12)
  1. SIBUTRAMINE (LEAD-IN) [Suspect]
     Indication: OBESITY
     Route: 048
     Dates: start: 20050805, end: 20050824
  2. ATENOLOL [Concomitant]
     Indication: CORONARY ARTERY DISEASE
     Dates: end: 20050824
  3. DIGOXIN [Concomitant]
     Indication: ATRIAL FIBRILLATION
     Dates: end: 20050824
  4. TRIMETAZIDINE [Concomitant]
     Indication: CORONARY ARTERY DISEASE
     Dates: start: 19960701, end: 20050824
  5. TRANDOLAPRIL [Concomitant]
     Indication: CORONARY ARTERY DISEASE
     Dates: end: 20050824
  6. SIMVASTATIN [Concomitant]
     Indication: HYPERLIPIDAEMIA
     Dates: start: 20050101, end: 20050824
  7. METFORMIN HYDROCHLORIDE [Concomitant]
     Indication: DIABETES MELLITUS
     Dates: end: 20050824
  8. GLIMEPIRIDE [Concomitant]
     Indication: DIABETES MELLITUS
     Dates: end: 20050824
  9. LAXARIN [Concomitant]
     Indication: ATRIAL FIBRILLATION
     Dates: end: 20050824
  10. ALLOPURINOL [Concomitant]
     Indication: HYPERURICAEMIA
     Dates: end: 20050824
  11. SULODEXIDE [Concomitant]
     Indication: ANTIPLATELET THERAPY
     Dates: end: 20050824
  12. POTASSIUM CHLORIDE [Concomitant]
     Indication: MINERAL SUPPLEMENTATION
     Dates: start: 20050101, end: 20050824

REACTIONS (1)
  - VENTRICULAR FIBRILLATION [None]
